FAERS Safety Report 12280713 (Version 1)
Quarter: 2016Q2

REPORT INFORMATION
  Report Type: Spontaneous
  Country: US (occurrence: US)
  Receive Date: 20160419
  Receipt Date: 20160419
  Transmission Date: 20160815
  Serious: No
  Sender: FDA-Public Use
  Company Number: US-BAYER-2016-068467

PATIENT
  Age: 14 Year
  Sex: Male

DRUGS (3)
  1. TYLENOL COLD , CHILDRENS [Concomitant]
     Active Substance: ACETAMINOPHEN\CHLORPHENIRAMINE MALEATE\PSEUDOEPHEDRINE
     Indication: NASOPHARYNGITIS
     Dosage: UNK, PRN
  2. CLARITIN-D 12 HOUR [Suspect]
     Active Substance: LORATADINE\PSEUDOEPHEDRINE SULFATE
     Indication: SEASONAL ALLERGY
     Dosage: 0.5 DF, QD
     Route: 048
     Dates: start: 2016
  3. CHILDREN CLARITIN ALLERGY [Suspect]
     Active Substance: LORATADINE
     Indication: SEASONAL ALLERGY
     Dosage: 1 DF, BID, TEASPOON
     Route: 048
     Dates: start: 2016, end: 2016

REACTIONS (2)
  - Intentional product misuse [None]
  - Product use issue [None]
